FAERS Safety Report 4312889-5 (Version None)
Quarter: 2004Q1

REPORT INFORMATION
  Report Type: 
  Country: None (occurrence: None)
  Receive Date: 20040304
  Receipt Date: 20031126
  Transmission Date: 20041129
  Serious: Yes (Hospitalization, Other)
  Sender: FDA-Public Use
  Company Number: ENTC2003-0028 (2)

PATIENT
  Age: 61 Year
  Sex: Female

DRUGS (9)
  1. STALEVO 50 [Suspect]
     Indication: PARKINSON'S DISEASE
     Dosage: 12, 5 MG/50 MG/ 200 MG 7QD, ORAL; 3 DOSES, ORAL
     Route: 048
     Dates: start: 20030930, end: 20031013
  2. STALEVO 50 [Suspect]
     Indication: PARKINSON'S DISEASE
     Dosage: 12, 5 MG/50 MG/ 200 MG 7QD, ORAL; 3 DOSES, ORAL
     Route: 048
     Dates: start: 20031108
  3. SINEMET (UNKNOWN) [Concomitant]
  4. LODOSYN  (UNKNOWN) [Concomitant]
  5. WELLBUTRIN  (UNKNOWN) [Concomitant]
  6. PREMARIN  (UNKNOWN) [Concomitant]
  7. XANAX  (UNKNOWN) [Concomitant]
  8. MIRAPEX (UNKNOWN) [Concomitant]
  9. AMANTADINE HCL [Concomitant]

REACTIONS (7)
  - COLONOSCOPY ABNORMAL [None]
  - DEHYDRATION [None]
  - DIARRHOEA [None]
  - NAUSEA [None]
  - VIRAL INFECTION [None]
  - VOMITING [None]
  - WEIGHT DECREASED [None]
